FAERS Safety Report 10219041 (Version 1)
Quarter: 2014Q2

REPORT INFORMATION
  Report Type: Spontaneous
  Country: DE (occurrence: DE)
  Receive Date: 20140605
  Receipt Date: 20140605
  Transmission Date: 20141212
  Serious: Yes (Hospitalization, Other)
  Sender: FDA-Public Use
  Company Number: DE-PFIZER INC-2014153473

PATIENT
  Age: 87 Year
  Sex: Female
  Weight: 51 kg

DRUGS (10)
  1. ARICEPT [Suspect]
     Dosage: 5 MG, 1X/DAY
     Route: 048
     Dates: start: 20130705
  2. SERTRALINE HCL [Suspect]
     Indication: DEPRESSION
     Dosage: 25 MG, 1X/DAY
     Route: 048
     Dates: start: 20130713, end: 20130714
  3. SERTRALINE HCL [Suspect]
     Indication: ANXIETY
  4. PREDNISOLONE [Suspect]
     Dosage: 5 MG, 1X/DAY
     Route: 048
     Dates: start: 20130226
  5. PIPAMPERONE [Suspect]
     Dosage: 20 MG, 1X/DAY
     Route: 048
     Dates: start: 20130713, end: 20130714
  6. PANTOPRAZOL [Concomitant]
     Dosage: 20 MG, 1X/DAY
     Route: 051
     Dates: start: 20130226
  7. BLOPRESS [Concomitant]
     Dosage: 16 MG, DAILY
     Route: 048
     Dates: start: 20130423
  8. PREGABALIN [Concomitant]
     Indication: ANXIETY
     Dosage: 25 MG/DAY
     Dates: start: 20130718
  9. LORAZEPAM [Concomitant]
     Indication: ANXIETY
     Dosage: 0.5 MG, AS NEEDED (0.5 MG,TID)
     Dates: start: 20130714
  10. CANDESARTAN [Concomitant]
     Dosage: 16 MG,1 IN 1 D
     Route: 048
     Dates: start: 20130423

REACTIONS (5)
  - Dementia [Unknown]
  - Depression [Unknown]
  - Anxiety [Unknown]
  - Convulsion [Recovered/Resolved]
  - Blood prolactin increased [Recovering/Resolving]
